FAERS Safety Report 24190313 (Version 3)
Quarter: 2024Q4

REPORT INFORMATION
  Report Type: Spontaneous
  Country: US (occurrence: US)
  Receive Date: 20240808
  Receipt Date: 20241016
  Transmission Date: 20250114
  Serious: Yes (Other)
  Sender: SANOFI AVENTIS
  Company Number: US-SA-SAC20240802001000

PATIENT
  Age: 80 Year
  Sex: Female
  Weight: 68.4 kg

DRUGS (1)
  1. DUPIXENT [Suspect]
     Active Substance: DUPILUMAB
     Indication: Nasal polyps
     Dosage: 300 MG, QOW
     Route: 058
     Dates: start: 20240612, end: 202408

REACTIONS (10)
  - Glaucoma [Unknown]
  - Headache [Recovered/Resolved]
  - Urinary tract infection [Recovered/Resolved]
  - Nervous system disorder [Recovering/Resolving]
  - Anosmia [Not Recovered/Not Resolved]
  - Ageusia [Not Recovered/Not Resolved]
  - Facial pain [Unknown]
  - Ear discomfort [Unknown]
  - Ear pain [Unknown]
  - Intraocular pressure increased [Unknown]

NARRATIVE: CASE EVENT DATE: 20240101
